FAERS Safety Report 10435939 (Version 1)
Quarter: 2014Q3

REPORT INFORMATION
  Report Type: Spontaneous
  Country: US (occurrence: US)
  Receive Date: 20140908
  Receipt Date: 20140908
  Transmission Date: 20150326
  Serious: No
  Sender: FDA-Public Use
  Company Number: US-GLAXOSMITHKLINE-A1077709A

PATIENT
  Age: 52 Year
  Sex: Female

DRUGS (6)
  1. ALEVE [Concomitant]
     Active Substance: NAPROXEN SODIUM
  2. CLONAZEPAM. [Concomitant]
     Active Substance: CLONAZEPAM
  3. ADVAIR HFA [Suspect]
     Active Substance: FLUTICASONE PROPIONATE\SALMETEROL XINAFOATE
     Indication: CHRONIC OBSTRUCTIVE PULMONARY DISEASE
     Dosage: 1PUFF UNKNOWN
     Route: 055
     Dates: start: 2009, end: 2009
  4. SPIRIVA [Suspect]
     Active Substance: TIOTROPIUM BROMIDE MONOHYDRATE
  5. BREO ELLIPTA [Suspect]
     Active Substance: FLUTICASONE FUROATE\VILANTEROL TRIFENATATE
     Indication: CHRONIC OBSTRUCTIVE PULMONARY DISEASE
     Dosage: 1PUFF PER DAY
     Route: 055
     Dates: start: 20140608
  6. MVI [Concomitant]
     Active Substance: VITAMINS

REACTIONS (10)
  - Palpitations [Recovered/Resolved]
  - Candida infection [Recovered/Resolved]
  - Throat irritation [Not Recovered/Not Resolved]
  - Dysphagia [Not Recovered/Not Resolved]
  - Drug administration error [Recovered/Resolved]
  - Impaired work ability [Recovered/Resolved]
  - Dry mouth [Not Recovered/Not Resolved]
  - Malaise [Recovered/Resolved]
  - Oropharyngeal pain [Not Recovered/Not Resolved]
  - Feeling abnormal [Not Recovered/Not Resolved]

NARRATIVE: CASE EVENT DATE: 201406
